FAERS Safety Report 6914277-1 (Version None)
Quarter: 2010Q3

REPORT INFORMATION
  Report Type: 
  Country: None (occurrence: None)
  Receive Date: 20100809
  Receipt Date: 20100729
  Transmission Date: 20110219
  Serious: Yes (Disabling, Congenital Anomaly)
  Sender: FDA-Public Use
  Company Number: B0659452A

PATIENT
  Sex: Female
  Weight: 3 kg

DRUGS (2)
  1. COMBIVIR [Suspect]
     Indication: HIV INFECTION
     Dosage: 1%DS TWICE PER DAY
     Dates: start: 20091125, end: 20100521
  2. VIRAMUNE [Suspect]
     Indication: HIV INFECTION
     Dosage: 400MG PER DAY
     Dates: start: 20091125, end: 20100521

REACTIONS (2)
  - LIMB MALFORMATION [None]
  - LIMB REDUCTION DEFECT [None]
